FAERS Safety Report 19821378 (Version 1)
Quarter: 2021Q3

REPORT INFORMATION
  Report Type: Spontaneous
  Country: UM (occurrence: US)
  Receive Date: 20210913
  Receipt Date: 20210913
  Transmission Date: 20211014
  Serious: No
  Sender: FDA-Public Use
  Company Number: UM-PFIZER INC-2021679427

PATIENT
  Age: 51 Year
  Sex: Female

DRUGS (1)
  1. XELJANZ XR [Suspect]
     Active Substance: TOFACITINIB CITRATE
     Dosage: 11 MG, 1X/DAY, (ONCE DAILY)
     Route: 048
     Dates: start: 202105

REACTIONS (1)
  - Headache [Unknown]
